FAERS Safety Report 5245761-7 (Version None)
Quarter: 2007Q1

REPORT INFORMATION
  Report Type: 
  Country: None (occurrence: None)
  Receive Date: 20070223
  Receipt Date: 20070213
  Transmission Date: 20070707
  Serious: Yes (Other)
  Sender: FDA-Public Use
  Company Number: JP-PFIZER INC-2007012655

PATIENT
  Age: 37 Year
  Sex: Female

DRUGS (4)
  1. DOXORUBICIN HYDROCHLORIDE [Suspect]
     Indication: BREAST CANCER METASTATIC
  2. DOCETAXEL [Suspect]
     Indication: BREAST CANCER METASTATIC
  3. PACLITAXEL [Suspect]
     Dates: start: 20040901, end: 20041201
  4. TRASTUZUMAB [Suspect]
     Dates: start: 20030801, end: 20040801

REACTIONS (1)
  - SCLERODERMA [None]
